FAERS Safety Report 11022082 (Version 1)
Quarter: 2015Q2

REPORT INFORMATION
  Report Type: Report from Study
  Country: CA (occurrence: CA)
  Receive Date: 20150413
  Receipt Date: 20150413
  Transmission Date: 20150821
  Serious: Yes (Death)
  Sender: FDA-Public Use
  Company Number: PHHY2015CA005700

PATIENT
  Age: 54 Year
  Sex: Female

DRUGS (2)
  1. SANDOSTATIN [Suspect]
     Active Substance: OCTREOTIDE ACETATE
     Indication: INTESTINAL OBSTRUCTION
     Dosage: 100 UG, BID
     Route: 058
     Dates: start: 201410, end: 201411
  2. SANDOSTATIN LAR DEPOT [Suspect]
     Active Substance: OCTREOTIDE ACETATE
     Indication: INTESTINAL OBSTRUCTION
     Dosage: 20 MG, EVERY 4 WEEKS
     Route: 030
     Dates: start: 20141105

REACTIONS (9)
  - Oesophageal spasm [Unknown]
  - Abdominal pain [Unknown]
  - Nausea [Recovered/Resolved]
  - Pyrexia [Unknown]
  - Vomiting [Recovered/Resolved]
  - Product use issue [Unknown]
  - Death [Fatal]
  - Malaise [Unknown]
  - Mood altered [Unknown]

NARRATIVE: CASE EVENT DATE: 201502
